FAERS Safety Report 24666372 (Version 2)
Quarter: 2024Q4

REPORT INFORMATION
  Report Type: Spontaneous
  Country: US (occurrence: US)
  Receive Date: 20241126
  Receipt Date: 20241202
  Transmission Date: 20250115
  Serious: Yes (Death, Other)
  Sender: BIOMARIN
  Company Number: US-SANOFI-02302166

PATIENT

DRUGS (2)
  1. ALDURAZYME [Suspect]
     Active Substance: LARONIDASE
     Indication: Mucopolysaccharidosis I
     Dosage: 8.7 MG, QW
     Route: 042
     Dates: start: 20160719, end: 2024
  2. ALDURAZYME [Suspect]
     Active Substance: LARONIDASE
     Dosage: 8.7 MG, QW
     Route: 042
     Dates: start: 20241107

REACTIONS (2)
  - Death [Fatal]
  - Illness [Unknown]

NARRATIVE: CASE EVENT DATE: 20241101
